FAERS Safety Report 14263990 (Version 2)
Quarter: 2020Q1

REPORT INFORMATION
  Report Type: Report from Study
  Country: FR (occurrence: FR)
  Receive Date: 20171208
  Receipt Date: 20200204
  Transmission Date: 20200409
  Serious: Yes (Other)
  Sender: FDA-Public Use
  Company Number: FR-ASTRAZENECA-2017SF22480

PATIENT
  Age: 19414 Day
  Sex: Female
  Weight: 72 kg

DRUGS (6)
  1. MEDI4736 [Suspect]
     Active Substance: DURVALUMAB
     Indication: HER-2 POSITIVE BREAST CANCER
     Route: 042
     Dates: start: 20170705, end: 20170915
  2. MAALOX ANTACID [Concomitant]
     Active Substance: ALUMINUM HYDROXIDE\DIMETHICONE\MAGNESIUM HYDROXIDE
     Indication: DYSPEPSIA
     Dosage: AS REQUIRED
     Route: 048
     Dates: start: 20170818
  3. XGEVA [Concomitant]
     Active Substance: DENOSUMAB
     Indication: BONE DISORDER
     Route: 058
     Dates: start: 20170819
  4. TIORFAN [Concomitant]
     Active Substance: RACECADOTRIL
     Indication: DIARRHOEA
     Dosage: AS REQUIRED
     Route: 048
  5. DEXERYL [Concomitant]
     Indication: XEROSIS
     Route: 061
  6. DEXERYL [Concomitant]
     Indication: DRY SKIN
     Route: 061

REACTIONS (1)
  - Granulomatous lymphadenitis [Recovered/Resolved]

NARRATIVE: CASE EVENT DATE: 20170926
